FAERS Safety Report 9741542 (Version 1)
Quarter: 2013Q4

REPORT INFORMATION
  Report Type: Report from Study
  Country: DE (occurrence: DE)
  Receive Date: 20131210
  Receipt Date: 20131210
  Transmission Date: 20140711
  Serious: Yes (Life-Threatening, Hospitalization)
  Sender: FDA-Public Use
  Company Number: DE-ROCHE-1314832

PATIENT
  Age: 70 Year
  Sex: Male
  Weight: 69.5 kg

DRUGS (1)
  1. METHOXY POLYETHYLENE GLYCOL-EPOETIN BETA [Suspect]
     Indication: NEPHROGENIC ANAEMIA
     Dosage: DATE OF MOST RECENT DOSE PRIOR TO EVENT 28/OCT/2011
     Route: 042
     Dates: start: 20110822

REACTIONS (1)
  - Pyrexia [Recovered/Resolved]
